FAERS Safety Report 7320981-6 (Version None)
Quarter: 2011Q1

REPORT INFORMATION
  Report Type: 
  Country: None (occurrence: None)
  Receive Date: 20110228
  Receipt Date: 20110223
  Transmission Date: 20110831
  Serious: Yes (Death)
  Sender: FDA-Public Use
  Company Number: IT-ROCHE-761604

PATIENT
  Sex: Male

DRUGS (7)
  1. HALOPERIDOL [Concomitant]
     Indication: GLIOBLASTOMA
     Route: 048
     Dates: start: 20101215, end: 20110221
  2. TOPIRAMATE [Concomitant]
     Indication: GLIOBLASTOMA
     Route: 048
     Dates: start: 20101215, end: 20110221
  3. OMEPRAZOLE [Concomitant]
     Indication: GLIOBLASTOMA
     Route: 048
     Dates: start: 20081215, end: 20110221
  4. BEVACIZUMAB [Suspect]
     Indication: GLIOBLASTOMA
     Route: 042
     Dates: start: 20100402, end: 20110208
  5. IRINOTECAN [Suspect]
     Indication: GLIOBLASTOMA
     Route: 042
     Dates: start: 20100802, end: 20110208
  6. BETAMETHASONE [Concomitant]
     Indication: GLIOBLASTOMA
     Route: 048
     Dates: start: 20100402, end: 20110221
  7. OXCARBAZEPINE [Concomitant]
     Indication: GLIOBLASTOMA
     Route: 048
     Dates: start: 20101015, end: 20110221

REACTIONS (2)
  - COMA [None]
  - CEREBRAL HAEMORRHAGE [None]
